FAERS Safety Report 22901007 (Version 2)
Quarter: 2023Q4

REPORT INFORMATION
  Report Type: Spontaneous
  Country: JP (occurrence: JP)
  Receive Date: 20230904
  Receipt Date: 20231117
  Transmission Date: 20240110
  Serious: Yes (Death, Hospitalization, Other)
  Sender: FDA-Public Use
  Company Number: JP-MSD-M2022-01933

PATIENT
  Age: 66 Year
  Sex: Male

DRUGS (7)
  1. KEYTRUDA [Suspect]
     Active Substance: PEMBROLIZUMAB
     Indication: Laryngeal cancer recurrent
     Dosage: UNK, Q3W
     Route: 041
     Dates: start: 202111, end: 202201
  2. CARBOPLATIN [Suspect]
     Active Substance: CARBOPLATIN
     Indication: Laryngeal cancer recurrent
     Dosage: AUC 4
     Route: 065
  3. CARBOPLATIN [Suspect]
     Active Substance: CARBOPLATIN
     Dosage: UNK
     Route: 065
  4. FLUOROURACIL [Suspect]
     Active Substance: FLUOROURACIL
     Indication: Laryngeal cancer recurrent
     Dosage: 800 MILLIGRAM, Q3W
     Route: 065
  5. FLUOROURACIL [Suspect]
     Active Substance: FLUOROURACIL
     Dosage: UNK
     Route: 065
  6. PACLITAXEL [Suspect]
     Active Substance: PACLITAXEL
     Indication: Pharyngeal cancer recurrent
     Dosage: UNK
     Route: 065
  7. CETUXIMAB SAROTALOCAN SODIUM [Suspect]
     Active Substance: CETUXIMAB SAROTALOCAN SODIUM
     Indication: Pharyngeal cancer recurrent
     Dosage: UNK
     Route: 065

REACTIONS (4)
  - Malignant neoplasm progression [Fatal]
  - Rhabdomyolysis [Recovering/Resolving]
  - Immune-mediated myositis [Unknown]
  - Interstitial lung disease [Unknown]

NARRATIVE: CASE EVENT DATE: 20211130
